FAERS Safety Report 9300521 (Version 2)
Quarter: 2013Q3

REPORT INFORMATION
  Report Type: Spontaneous
  Country: IT (occurrence: IT)
  Receive Date: 20130521
  Receipt Date: 20130703
  Transmission Date: 20140515
  Serious: Yes (Hospitalization)
  Sender: FDA-Public Use
  Company Number: IT-BRISTOL-MYERS SQUIBB COMPANY-18883611

PATIENT
  Age: 79 Year
  Sex: Male

DRUGS (7)
  1. COUMADIN TABS 5 MG [Suspect]
     Indication: ATRIAL FIBRILLATION
     Route: 048
     Dates: start: 20121101, end: 20130507
  2. ASCRIPTIN [Suspect]
     Indication: TRANSIENT ISCHAEMIC ATTACK
     Route: 048
     Dates: start: 20050101, end: 20130507
  3. METOPROLOL [Concomitant]
     Route: 048
  4. DELORAZEPAM [Concomitant]
  5. OMEPRAZOL [Concomitant]
     Route: 048
  6. LANOXIN [Concomitant]
     Route: 048
  7. NISOLDIPINE [Concomitant]
     Route: 048

REACTIONS (4)
  - Coma [Not Recovered/Not Resolved]
  - Subdural haematoma [Not Recovered/Not Resolved]
  - Head injury [Unknown]
  - Drug hypersensitivity [Unknown]
